FAERS Safety Report 14088523 (Version 2)
Quarter: 2018Q2

REPORT INFORMATION
  Report Type: Spontaneous
  Country: US (occurrence: US)
  Receive Date: 20171013
  Receipt Date: 20180628
  Transmission Date: 20180711
  Serious: No
  Sender: FDA-Public Use
  Company Number: US-BIOGEN-2017BI00471488

PATIENT
  Sex: Female

DRUGS (1)
  1. TECFIDERA [Suspect]
     Active Substance: DIMETHYL FUMARATE
     Indication: MULTIPLE SCLEROSIS
     Route: 048
     Dates: start: 20160705, end: 20170726

REACTIONS (2)
  - Secondary progressive multiple sclerosis [Not Recovered/Not Resolved]
  - Balance disorder [Recovered/Resolved]
